FAERS Safety Report 7427074-8 (Version None)
Quarter: 2011Q2

REPORT INFORMATION
  Report Type: 
  Country: None (occurrence: None)
  Receive Date: 20110420
  Receipt Date: 20110418
  Transmission Date: 20111010
  Serious: Yes (Death, Life-Threatening, Hospitalization, Other)
  Sender: FDA-Public Use
  Company Number: PHHY2011US04886

PATIENT
  Sex: Female

DRUGS (1)
  1. GLEEVEC [Suspect]
     Indication: DESMOID TUMOUR
     Dosage: 400 MG DAILY
     Route: 048
     Dates: start: 20101206

REACTIONS (3)
  - DEATH [None]
  - TREATMENT FAILURE [None]
  - NEOPLASM PROGRESSION [None]
